FAERS Safety Report 5030057-9 (Version None)
Quarter: 2006Q2

REPORT INFORMATION
  Report Type: 
  Country: None (occurrence: None)
  Receive Date: 20060620
  Receipt Date: 20060608
  Transmission Date: 20061013
  Serious: Yes (Other)
  Sender: FDA-Public Use
  Company Number: JP-BRISTOL-MYERS SQUIBB COMPANY-13413901

PATIENT
  Age: 53 Year
  Sex: Female

DRUGS (6)
  1. IFOMIDE [Suspect]
     Indication: UTERINE LEIOMYOSARCOMA
  2. CARBOPLATIN [Suspect]
     Indication: UTERINE LEIOMYOSARCOMA
  3. ADRIACIN [Suspect]
     Indication: UTERINE LEIOMYOSARCOMA
  4. UROMITEXAN [Concomitant]
  5. TAXOTERE [Concomitant]
  6. GEMZAR [Concomitant]

REACTIONS (6)
  - ALOPECIA [None]
  - ANAEMIA [None]
  - PLATELET COUNT DECREASED [None]
  - PROTEINURIA [None]
  - PYREXIA [None]
  - WHITE BLOOD CELL COUNT DECREASED [None]
